FAERS Safety Report 6640016-8 (Version None)
Quarter: 2010Q1

REPORT INFORMATION
  Report Type: 
  Country: None (occurrence: None)
  Receive Date: 20100318
  Receipt Date: 20100308
  Transmission Date: 20100710
  Serious: Yes (Other)
  Sender: FDA-Public Use
  Company Number: PHHY2010CA13917

PATIENT
  Sex: Female

DRUGS (6)
  1. ALISKIREN ALI+ [Suspect]
     Indication: HYPERTENSION
     Dosage: 150 MG
     Route: 048
     Dates: start: 20090722, end: 20091007
  2. DIOVAN [Concomitant]
     Dosage: UNK
  3. CRESTOR [Concomitant]
  4. GLUCOBAY [Concomitant]
  5. METFORMIN HYDROCHLORIDE [Concomitant]
  6. HYDROCHLOROTHIAZIDE [Concomitant]

REACTIONS (2)
  - BLOOD CREATININE INCREASED [None]
  - URINE ALBUMIN/CREATININE RATIO INCREASED [None]
